FAERS Safety Report 6224051-X (Version None)
Quarter: 2009Q2

REPORT INFORMATION
  Report Type: 
  Country: None (occurrence: None)
  Receive Date: 20090612
  Receipt Date: 20090306
  Transmission Date: 20091009
  Serious: No
  Sender: FDA-Public Use
  Company Number: US-ABBOTT-09P-163-0561259-00

PATIENT
  Sex: Female

DRUGS (3)
  1. HUMIRA [Suspect]
     Indication: RHEUMATOID ARTHRITIS
     Dates: start: 20090101
  2. HUMIRA [Suspect]
     Indication: UVEITIS
  3. HUMIRA [Suspect]
     Indication: SERONEGATIVE ARTHRITIS

REACTIONS (5)
  - COUGH [None]
  - DRUG EFFECT DECREASED [None]
  - JOINT STIFFNESS [None]
  - PAIN IN EXTREMITY [None]
  - SPUTUM DISCOLOURED [None]
